FAERS Safety Report 26116805 (Version 1)
Quarter: 2025Q4

REPORT INFORMATION
  Report Type: Spontaneous
  Country: JM (occurrence: JM)
  Receive Date: 20251203
  Receipt Date: 20251203
  Transmission Date: 20260117
  Serious: Yes (Hospitalization)
  Sender: GLENMARK
  Company Number: JM-MLMSERVICE-20251117-PI695428-00050-1

PATIENT
  Age: 64 Year
  Sex: Male

DRUGS (14)
  1. TELMISARTAN [Interacting]
     Active Substance: TELMISARTAN
     Indication: Hypertension
     Dosage: UNK
     Route: 065
  2. AMLODIPINE [Interacting]
     Active Substance: AMLODIPINE BESYLATE
     Indication: Hypertension
     Dosage: UNK
     Route: 065
  3. ATORVASTATIN [Interacting]
     Active Substance: ATORVASTATIN
     Indication: Hypertensive heart disease
     Dosage: UNK
     Route: 065
  4. TECHNETIUM TC-99M SESTAMIBI [Interacting]
     Active Substance: TECHNETIUM TC-99M SESTAMIBI
     Indication: Hypertension
     Dosage: UNK
     Route: 042
  5. VINPOCETINE [Concomitant]
     Active Substance: VINPOCETINE
     Indication: Amnesia
     Dosage: UNK
     Route: 065
  6. ASPIRIN [Concomitant]
     Active Substance: ASPIRIN
     Indication: Hypertensive heart disease
     Dosage: UNK
     Route: 065
  7. HYDRALAZINE [Concomitant]
     Active Substance: HYDRALAZINE HYDROCHLORIDE
     Indication: Hypertension
     Dosage: UNK
     Route: 065
  8. CALCITRIOL [Concomitant]
     Active Substance: CALCITRIOL
     Indication: Chronic kidney disease
     Dosage: UNK
     Route: 065
  9. FEBUXOSTAT [Concomitant]
     Active Substance: FEBUXOSTAT
     Indication: Gout
     Dosage: UNK
     Route: 065
  10. CARVEDILOL [Concomitant]
     Active Substance: CARVEDILOL
     Indication: Hypertensive heart disease
     Dosage: UNK
     Route: 065
  11. DONEPEZIL [Concomitant]
     Active Substance: DONEPEZIL
     Indication: Dementia
     Dosage: UNK
     Route: 065
  12. DUTASTERIDE\TAMSULOSIN HYDROCHLORIDE [Concomitant]
     Active Substance: DUTASTERIDE\TAMSULOSIN HYDROCHLORIDE
     Indication: Benign prostatic hyperplasia
     Dosage: UNK
     Route: 065
  13. SEVELAMER CARBONATE [Concomitant]
     Active Substance: SEVELAMER CARBONATE
     Indication: Chronic kidney disease
     Dosage: UNK
     Route: 065
  14. CALCIUM CARBONATE [Concomitant]
     Active Substance: CALCIUM CARBONATE
     Indication: Chronic kidney disease
     Dosage: UNK
     Route: 065

REACTIONS (3)
  - Laboratory test interference [Unknown]
  - Therapeutic agent-diagnostic test interaction [Unknown]
  - Parathyroid scan abnormal [Unknown]
